FAERS Safety Report 18960695 (Version 1)
Quarter: 2021Q1

REPORT INFORMATION
  Report Type: Spontaneous
  Country: IE (occurrence: IE)
  Receive Date: 20210303
  Receipt Date: 20210303
  Transmission Date: 20210420
  Serious: Yes (Hospitalization, Other)
  Sender: FDA-Public Use
  Company Number: IE-SA-2021SA065622

PATIENT
  Age: 63 Year
  Sex: Female
  Weight: 52 kg

DRUGS (12)
  1. LEMTRADA [Suspect]
     Active Substance: ALEMTUZUMAB
     Indication: INTESTINAL OBSTRUCTION
  2. ASCORBIC ACID. [Suspect]
     Active Substance: ASCORBIC ACID
     Indication: INTESTINAL OBSTRUCTION
     Dosage: UNK
  3. CERNEVIT [Suspect]
     Active Substance: VITAMINS
     Indication: INTESTINAL OBSTRUCTION
  4. MAXOLON [Concomitant]
     Active Substance: METOCLOPRAMIDE HYDROCHLORIDE
     Indication: PRODUCT USED FOR UNKNOWN INDICATION
     Dosage: 60 MG
     Route: 058
  5. LANSOPRAZOLE. [Concomitant]
     Active Substance: LANSOPRAZOLE
     Indication: GASTRITIS
     Dosage: 30 MG
     Route: 065
  6. WATER. [Suspect]
     Active Substance: WATER
     Indication: MEDICATION DILUTION
     Dosage: INFUSION RATE OF 112 ML/H (MILLILITERS PER HOUR)
     Route: 042
     Dates: start: 20201229
  7. TRIOMEL [Suspect]
     Active Substance: AMINO ACIDS\DEXTROSE\ELECTROLYTES NOS\SOYBEAN OIL
     Indication: INTESTINAL OBSTRUCTION
  8. LEMTRADA [Suspect]
     Active Substance: ALEMTUZUMAB
     Indication: BREAST CANCER METASTATIC
     Dosage: INFUSION RATE OF 112 ML/H (MILLILITERS PER HOUR), Q18H
     Route: 042
     Dates: start: 20201229
  9. ASCORBIC ACID. [Suspect]
     Active Substance: ASCORBIC ACID
     Indication: BREAST CANCER METASTATIC
     Dosage: INFUSION RATE OF 112 ML/H (MILLILITERS PER HOUR), Q18H
     Route: 042
     Dates: start: 20201229
  10. CERNEVIT [Suspect]
     Active Substance: VITAMINS
     Indication: BREAST CANCER METASTATIC
     Dosage: INFUSION RATE OF 112 ML/H (MILLILITERS PER HOUR), Q18H
     Route: 042
     Dates: start: 20201229
  11. TRIOMEL [Suspect]
     Active Substance: AMINO ACIDS\DEXTROSE\ELECTROLYTES NOS\SOYBEAN OIL
     Indication: BREAST CANCER METASTATIC
     Dosage: INFUSION RATE OF 112 ML/H (MILLILITERS PER HOUR), Q18H
     Route: 042
     Dates: start: 20201229
  12. MORPHINE [Concomitant]
     Active Substance: MORPHINE
     Indication: PRODUCT USED FOR UNKNOWN INDICATION
     Dosage: 15 MG
     Route: 058

REACTIONS (4)
  - Swelling [Not Recovered/Not Resolved]
  - Subclavian vein thrombosis [Recovering/Resolving]
  - Incorrect dose administered by device [Unknown]
  - Device occlusion [Unknown]

NARRATIVE: CASE EVENT DATE: 20210101
